FAERS Safety Report 8323327 (Version 4)
Quarter: 2013Q1

REPORT INFORMATION
  Report Type: Spontaneous
  Country: IT (occurrence: None)
  Receive Date: 20111227
  Receipt Date: 20130226
  Transmission Date: 20140127
  Serious: Yes (Hospitalization, Other)
  Sender: FDA-Public Use
  Company Number: 2011MPI00335

PATIENT
  Age: 21 Year
  Sex: Male

DRUGS (1)
  1. BRENTUXIMAB VEDOTIN [Suspect]
     Indication: HODGKIN^S DISEASE
     Dosage: QCYCLE
     Route: 042
     Dates: start: 20110401, end: 20111012

REACTIONS (7)
  - PERIPHERAL SENSORIMOTOR NEUROPATHY [None]
  - JC virus test positive [None]
  - Activities of daily living impaired [None]
  - Muscle atrophy [None]
  - Hodgkin^s disease recurrent [None]
  - Demyelinating polyneuropathy [None]
  - Peripheral sensory neuropathy [None]
